FAERS Safety Report 10744625 (Version 2)
Quarter: 2015Q1

REPORT INFORMATION
  Report Type: Report from Study
  Country: CZ (occurrence: CZ)
  Receive Date: 20150128
  Receipt Date: 20150211
  Transmission Date: 20150721
  Serious: Yes (Other)
  Sender: FDA-Public Use
  Company Number: CZ-CELGENE-CZE-2014125448

PATIENT

DRUGS (3)
  1. REVLIMID [Suspect]
     Active Substance: LENALIDOMIDE
     Indication: PLASMA CELL MYELOMA
     Route: 048
     Dates: start: 20110407, end: 20120628
  2. ADRIAMYCIN [Concomitant]
     Active Substance: DOXORUBICIN HYDROCHLORIDE
     Indication: PLASMA CELL MYELOMA
     Route: 065
     Dates: start: 20110407, end: 20120628
  3. PREDNISON [Concomitant]
     Active Substance: PREDNISONE
     Indication: PLASMA CELL MYELOMA
     Route: 065
     Dates: start: 20110407, end: 20120628

REACTIONS (8)
  - Confusional state [Unknown]
  - Dyspepsia [Unknown]
  - Sepsis [Unknown]
  - Haematotoxicity [Unknown]
  - Dyspnoea [Unknown]
  - Febrile neutropenia [Unknown]
  - Pneumonia [Unknown]
  - Neuropathy peripheral [Unknown]
